FAERS Safety Report 4805368-X (Version None)
Quarter: 2005Q4

REPORT INFORMATION
  Report Type: 
  Country: None (occurrence: None)
  Receive Date: 20051018
  Receipt Date: 20051005
  Transmission Date: 20060501
  Serious: Yes (Death)
  Sender: FDA-Public Use
  Company Number: 2005-BP-18110R0

PATIENT
  Age: 64 Year
  Sex: Female

DRUGS (3)
  1. CYCLOPHOSPHAMIDE [Suspect]
     Indication: PANCREATIC CARCINOMA
     Dosage: 50 MG AT ONE DAY INTERVALS (NR), PO
     Route: 048
  2. GEMCITABINE (GEMCITABINE) [Suspect]
     Indication: PANCREATIC CARCINOMA
     Dosage: 200-400 MG (6 MG/KG) WEEKLY (NR, 1 IN 1 WK). SEE TEXT
  3. URACIL-TEGAFUR (TEGAFUR URACIL) [Suspect]
     Indication: PANCREATIC CARCINOMA
     Dosage: 200-400 MG (6 MG/KG) DAILY (NR), PO
     Route: 048

REACTIONS (1)
  - MALIGNANT ASCITES [None]
